FAERS Safety Report 8881429 (Version 1)
Quarter: 2012Q4

REPORT INFORMATION
  Report Type: 
  Country: US (occurrence: US)
  Receive Date: 20121101
  Receipt Date: 20121101
  Transmission Date: 20130627
  Serious: No
  Sender: FDA-Public Use
  Company Number: US-BAYER-2012-112867

PATIENT
  Age: 37 Year
  Sex: Female

DRUGS (1)
  1. SAFYRAL [Suspect]
     Indication: HEAVY PERIODS
     Dosage: UNK
     Route: 048
     Dates: start: 20121024

REACTIONS (1)
  - No adverse event [None]
